FAERS Safety Report 6701997-7 (Version None)
Quarter: 2010Q2

REPORT INFORMATION
  Report Type: 
  Country: None (occurrence: None)
  Receive Date: 20100429
  Receipt Date: 20100331
  Transmission Date: 20101027
  Serious: No
  Sender: FDA-Public Use
  Company Number: JP-ROCHE-698922

PATIENT

DRUGS (1)
  1. OSELTAMIVIR PHOSPHATE [Suspect]
     Indication: INFLUENZA
     Route: 064
     Dates: start: 20091028, end: 20091102

REACTIONS (1)
  - DRUG EXPOSURE DURING PREGNANCY [None]
